FAERS Safety Report 11782331 (Version 9)
Quarter: 2017Q1

REPORT INFORMATION
  Report Type: Report from Study
  Country: JP (occurrence: JP)
  Receive Date: 20151127
  Receipt Date: 20170124
  Transmission Date: 20170428
  Serious: Yes (Death, Hospitalization)
  Sender: FDA-Public Use
  Company Number: JP-ROCHE-1668709

PATIENT
  Age: 71 Year
  Sex: Female
  Weight: 50 kg

DRUGS (9)
  1. OPDIVO [Concomitant]
     Active Substance: NIVOLUMAB
     Indication: MALIGNANT MELANOMA
     Route: 041
     Dates: start: 20160414, end: 20160414
  2. VEMURAFENIB [Suspect]
     Active Substance: VEMURAFENIB
     Route: 048
     Dates: start: 20160525, end: 20160621
  3. OPDIVO [Concomitant]
     Active Substance: NIVOLUMAB
     Indication: MALIGNANT MELANOMA
     Route: 041
     Dates: start: 20160331, end: 20160331
  4. DERMOVATE [Concomitant]
     Active Substance: CLOBETASOL
     Indication: MALIGNANT MELANOMA
     Dosage: DOSAGE IS UNCERTAIN.
     Route: 003
     Dates: start: 20151119, end: 20160317
  5. VEMURAFENIB [Suspect]
     Active Substance: VEMURAFENIB
     Indication: MALIGNANT MELANOMA
     Route: 048
     Dates: start: 20151201, end: 20160319
  6. OPDIVO [Concomitant]
     Active Substance: NIVOLUMAB
     Indication: MALIGNANT MELANOMA
     Route: 041
     Dates: start: 20160512, end: 20160512
  7. VEMURAFENIB [Suspect]
     Active Substance: VEMURAFENIB
     Indication: MALIGNANT MELANOMA
     Route: 048
     Dates: start: 20151111, end: 20151118
  8. OPDIVO [Concomitant]
     Active Substance: NIVOLUMAB
     Indication: MALIGNANT MELANOMA
     Route: 041
     Dates: start: 20160428, end: 20160428
  9. ALLELOCK [Concomitant]
     Active Substance: OLOPATADINE HYDROCHLORIDE
     Indication: MALIGNANT MELANOMA
     Dosage: THE FRACTIONATION DOSE FREQUENCY IS UNCERTAIN.
     Route: 048
     Dates: start: 20151119, end: 20160317

REACTIONS (6)
  - Malignant melanoma [Fatal]
  - Myalgia [Recovered/Resolved]
  - Dysgeusia [Recovered/Resolved]
  - Renal impairment [Recovered/Resolved]
  - Skin disorder [Recovered/Resolved]
  - Pyrexia [Not Recovered/Not Resolved]

NARRATIVE: CASE EVENT DATE: 20151118
